FAERS Safety Report 15805612 (Version 2)
Quarter: 2019Q1

REPORT INFORMATION
  Report Type: Spontaneous
  Country: KR (occurrence: KR)
  Receive Date: 20190110
  Receipt Date: 20190201
  Transmission Date: 20190417
  Serious: Yes (Hospitalization, Other)
  Sender: FDA-Public Use
  Company Number: KR-CELLTRION INC.-2019KR017568

PATIENT

DRUGS (37)
  1. RIFAXIMIN. [Concomitant]
     Active Substance: RIFAXIMIN
  2. REMSIMA [Suspect]
     Active Substance: INFLIXIMAB
     Dosage: 200 MG, EVERY 6 WEEKS
     Route: 065
  3. REMSIMA [Suspect]
     Active Substance: INFLIXIMAB
     Dosage: 200 MG, EVERY 6 WEEKS
     Route: 065
  4. REMSIMA [Suspect]
     Active Substance: INFLIXIMAB
     Dosage: 200 MG, EVERY 6 WEEKS
     Route: 065
  5. REMSIMA [Suspect]
     Active Substance: INFLIXIMAB
     Dosage: UNK
     Route: 065
  6. AZATHIOPRINE. [Concomitant]
     Active Substance: AZATHIOPRINE
     Route: 048
  7. ADALIMUMAB [Concomitant]
     Active Substance: ADALIMUMAB
     Dosage: UNK, 12 INFUSIONS OF ADALIMUMAB OVER 9
  8. ADALIMUMAB [Concomitant]
     Active Substance: ADALIMUMAB
     Dosage: 12 INFUSIONS OF ADALIMUMAB OVER 9UNK
  9. REMSIMA [Suspect]
     Active Substance: INFLIXIMAB
     Dosage: 200 MG, EVERY 6 WEEKS
     Route: 065
  10. REMSIMA [Suspect]
     Active Substance: INFLIXIMAB
     Dosage: UNK
     Route: 065
  11. ADALIMUMAB [Concomitant]
     Active Substance: ADALIMUMAB
     Dosage: , 12 INFUSIONS OF ADALIMUMAB OVER 9UNK
  12. ADALIMUMAB [Concomitant]
     Active Substance: ADALIMUMAB
     Dosage: , 12 INFUSIONS OF ADALIMUMAB OVER 9UNK
  13. ADALIMUMAB [Concomitant]
     Active Substance: ADALIMUMAB
     Dosage: UNK,1 2 INFUSIONS OF ADALIMUMAB OVER 9
  14. REMSIMA [Suspect]
     Active Substance: INFLIXIMAB
     Dosage: 200 MG, EVERY 6 WEEKS
     Route: 065
  15. AZATHIOPRINE. [Concomitant]
     Active Substance: AZATHIOPRINE
     Route: 048
  16. REMSIMA [Suspect]
     Active Substance: INFLIXIMAB
     Indication: INFLAMMATORY BOWEL DISEASE
     Dosage: 200 MG, EVERY 6 WEEKS
     Route: 065
  17. REMSIMA [Suspect]
     Active Substance: INFLIXIMAB
     Dosage: 200 MG, EVERY 6 WEEKS
     Route: 065
  18. REMSIMA [Suspect]
     Active Substance: INFLIXIMAB
     Dosage: 200 MG, EVERY 6 WEEKS
     Route: 065
  19. REMSIMA [Suspect]
     Active Substance: INFLIXIMAB
     Dosage: 200 MG, EVERY 6 WEEKS
     Route: 065
  20. REMSIMA [Suspect]
     Active Substance: INFLIXIMAB
     Dosage: 200 MG, EVERY 6 WEEKS
     Route: 065
  21. METHYLPREDNISOLONE. [Concomitant]
     Active Substance: METHYLPREDNISOLONE
     Route: 042
  22. REMSIMA [Suspect]
     Active Substance: INFLIXIMAB
     Dosage: UNK
     Route: 065
  23. ADALIMUMAB [Concomitant]
     Active Substance: ADALIMUMAB
     Dosage: , 12 INFUSIONS OF ADALIMUMAB OVER 9UNK
  24. REMSIMA [Suspect]
     Active Substance: INFLIXIMAB
     Dosage: 200 MG, EVERY 6 WEEKS
     Route: 065
  25. REMSIMA [Suspect]
     Active Substance: INFLIXIMAB
     Dosage: 200 MG, EVERY 6 WEEKS
     Route: 065
  26. REMSIMA [Suspect]
     Active Substance: INFLIXIMAB
     Dosage: 200 MG, EVERY 6 WEEKS
     Route: 065
  27. REMSIMA [Suspect]
     Active Substance: INFLIXIMAB
     Dosage: 200 MG, EVERY 6 WEEKS
     Route: 065
  28. ADALIMUMAB [Concomitant]
     Active Substance: ADALIMUMAB
     Dosage: , 12 INFUSIONS OF ADALIMUMAB OVER 9UNK
  29. ADALIMUMAB [Concomitant]
     Active Substance: ADALIMUMAB
     Dosage: 12 INFUSIONS OF ADALIMUMAB OVER 9UNK
  30. REMSIMA [Suspect]
     Active Substance: INFLIXIMAB
     Dosage: 200 MG, EVERY 6 WEEKS
     Route: 065
  31. REMSIMA [Suspect]
     Active Substance: INFLIXIMAB
     Dosage: 200 MG, EVERY 6 WEEKS
     Route: 065
  32. REMSIMA [Suspect]
     Active Substance: INFLIXIMAB
     Dosage: 200 MG, EVERY 6 WEEKS
     Route: 065
  33. AZATHIOPRINE. [Concomitant]
     Active Substance: AZATHIOPRINE
     Route: 048
  34. ADALIMUMAB [Concomitant]
     Active Substance: ADALIMUMAB
     Dosage: UNK, 12 INFUSIONS OF ADALIMUMAB OVER 9
  35. ADALIMUMAB [Concomitant]
     Active Substance: ADALIMUMAB
     Dosage: UNK, 12 INFUSIONS OF ADALIMUMAB OVER 9
  36. ADALIMUMAB [Concomitant]
     Active Substance: ADALIMUMAB
     Dosage: 12 INFUSIONS OF ADALIMUMAB OVER 9UNK
  37. ADALIMUMAB [Concomitant]
     Active Substance: ADALIMUMAB
     Dosage: 12 INFUSIONS OF ADALIMUMAB OVER 9

REACTIONS (4)
  - Azotaemia [Unknown]
  - Diarrhoea [Unknown]
  - Abdominal pain [Unknown]
  - Renal amyloidosis [Unknown]
